FAERS Safety Report 9854248 (Version 3)
Quarter: 2014Q1

REPORT INFORMATION
  Report Type: Spontaneous
  Country: US (occurrence: US)
  Receive Date: 20140130
  Receipt Date: 20140303
  Transmission Date: 20141002
  Serious: Yes (Hospitalization, Other)
  Sender: FDA-Public Use
  Company Number: US-BEH-2012033914

PATIENT
  Age: 42 Year
  Sex: Female
  Weight: 75 kg

DRUGS (13)
  1. BERINERT [Suspect]
     Dosage: STARTED MAY 2012
     Route: 042
  2. BERINERT [Suspect]
     Indication: HEREDITARY ANGIOEDEMA
     Dosage: 20 UNITS/KG PRN
     Route: 042
  3. BERINERT [Suspect]
     Dosage: 1000 UNITS
     Route: 042
     Dates: start: 20130308, end: 20130308
  4. BERINERT [Suspect]
     Dates: start: 20140114
  5. KALBITOR [Suspect]
     Dosage: SINCE 2012; 30 MG SC PRN; 30 MG X1
     Route: 058
     Dates: start: 20130308, end: 20130308
  6. KALBITOR [Suspect]
     Dosage: SINCE 2012; 30 MG SC PRN;30 MG X1
     Route: 058
     Dates: start: 20130309, end: 20130309
  7. KALBITOR [Suspect]
     Dosage: SINCE 2012; 30 MG SC PRN; 30 MG X1
     Route: 058
     Dates: start: 20130311, end: 20130311
  8. FIRAZYR [Suspect]
     Dosage: 30 MG PRN
     Route: 058
     Dates: start: 20130308, end: 20130308
  9. SYNTHROID [Concomitant]
  10. LEXAPRO [Concomitant]
  11. BENADRYL [Concomitant]
  12. ZANTAC [Concomitant]
  13. PREDNISONE [Concomitant]

REACTIONS (5)
  - Drug ineffective [Recovered/Resolved]
  - Drug ineffective [Unknown]
  - Renal function test abnormal [Unknown]
  - Inappropriate schedule of drug administration [Unknown]
  - Vision blurred [Recovered/Resolved]
